FAERS Safety Report 11023346 (Version 2)
Quarter: 2015Q2

REPORT INFORMATION
  Report Type: Spontaneous
  Country: US (occurrence: US)
  Receive Date: 20150413
  Receipt Date: 20150428
  Transmission Date: 20150821
  Serious: No
  Sender: FDA-Public Use
  Company Number: US-PFIZER INC-2015120877

PATIENT
  Age: 46 Year
  Sex: Female
  Weight: 82 kg

DRUGS (5)
  1. TRAMADOL [Concomitant]
     Active Substance: TRAMADOL
     Dosage: UNK, 2X/DAY
     Route: 048
  2. LYRICA [Suspect]
     Active Substance: PREGABALIN
     Indication: RADICULOPATHY
     Dosage: UNK
     Route: 048
  3. LYRICA [Suspect]
     Active Substance: PREGABALIN
     Indication: PARAESTHESIA
     Dosage: 75MG IN THE MORNING AND TWO 75 MG AT NIGHT 2X/DAY
     Route: 048
     Dates: start: 20150113
  4. HYDROCODONE [Concomitant]
     Active Substance: HYDROCODONE
     Dosage: (7.5 UNK), 1X/DAY
     Route: 048
  5. SERTRALINE [Concomitant]
     Active Substance: SERTRALINE HYDROCHLORIDE
     Indication: DEPRESSION
     Dosage: 75 MG, AT BED TIME 1X/DAY

REACTIONS (1)
  - Pain [Recovering/Resolving]
